FAERS Safety Report 11603931 (Version 2)
Quarter: 2015Q4

REPORT INFORMATION
  Report Type: Spontaneous
  Country: AU (occurrence: AU)
  Receive Date: 20151007
  Receipt Date: 20151118
  Transmission Date: 20160304
  Serious: Yes (Hospitalization)
  Sender: FDA-Public Use
  Company Number: AU-ABBVIE-15K-008-1473911-00

PATIENT
  Age: 51 Year
  Sex: Female

DRUGS (5)
  1. HUMIRA [Suspect]
     Active Substance: ADALIMUMAB
     Indication: CHEST INJURY
  2. HUMIRA [Suspect]
     Active Substance: ADALIMUMAB
     Indication: OSTEITIS
     Route: 058
     Dates: start: 20150827, end: 20150827
  3. PREDNISOLONE. [Concomitant]
     Active Substance: PREDNISOLONE
     Indication: PRODUCT USED FOR UNKNOWN INDICATION
     Dates: end: 2015
  4. EUTROXSIG [Concomitant]
     Active Substance: LEVOTHYROXINE SODIUM
     Indication: HYPOTHYROIDISM
  5. PREDNISOLONE. [Concomitant]
     Active Substance: PREDNISOLONE
     Dates: start: 2015

REACTIONS (16)
  - Type IV hypersensitivity reaction [Unknown]
  - Resuscitation [Not Recovered/Not Resolved]
  - Resuscitation [Not Recovered/Not Resolved]
  - Injection site urticaria [Unknown]
  - Dizziness [Not Recovered/Not Resolved]
  - Rash generalised [Not Recovered/Not Resolved]
  - Pharyngeal oedema [Unknown]
  - Malaise [Not Recovered/Not Resolved]
  - Vestibular neuronitis [Not Recovered/Not Resolved]
  - Tinnitus [Not Recovered/Not Resolved]
  - Injection site pain [Not Recovered/Not Resolved]
  - Headache [Not Recovered/Not Resolved]
  - Mouth swelling [Unknown]
  - Injection site erythema [Not Recovered/Not Resolved]
  - Diarrhoea [Not Recovered/Not Resolved]
  - Urticaria [Recovered/Resolved]

NARRATIVE: CASE EVENT DATE: 2015
